FAERS Safety Report 12811001 (Version 1)
Quarter: 2016Q4

REPORT INFORMATION
  Report Type: Spontaneous
  Country: US (occurrence: US)
  Receive Date: 20161005
  Receipt Date: 20161005
  Transmission Date: 20170207
  Serious: Yes (Disabling)
  Sender: FDA-Public Use
  Company Number: None

PATIENT
  Age: 77 Year
  Sex: Female
  Weight: 59.42 kg

DRUGS (4)
  1. TRAVATAN Z [Suspect]
     Active Substance: TRAVOPROST
     Indication: GLAUCOMA
     Dosage: TRAVATAN Z 0.0004 % OPTHALMIC SOLUTION - 1 DROP EACH EYE A DAY
     Route: 047
     Dates: end: 20160901
  2. QUINAPRIL. [Concomitant]
     Active Substance: QUINAPRIL
  3. ESTALOL [Concomitant]
  4. CARVEDILOL. [Concomitant]
     Active Substance: CARVEDILOL

REACTIONS (1)
  - Urinary tract infection [None]
